FAERS Safety Report 14529877 (Version 2)
Quarter: 2019Q2

REPORT INFORMATION
  Report Type: Spontaneous
  Country: US (occurrence: US)
  Receive Date: 20180214
  Receipt Date: 20190409
  Transmission Date: 20190711
  Serious: Yes (Hospitalization)
  Sender: FDA-Public Use
  Company Number: US-PFIZER INC-2018064059

PATIENT
  Age: 84 Year
  Sex: Female
  Weight: 59 kg

DRUGS (3)
  1. METHOTREXATE SODIUM. [Suspect]
     Active Substance: METHOTREXATE SODIUM
     Indication: RHEUMATOID ARTHRITIS
     Dosage: 7 TABS ONCE A WEEK
     Dates: start: 1976, end: 2016
  2. PREDNISONE. [Suspect]
     Active Substance: PREDNISONE
     Indication: RHEUMATOID ARTHRITIS
     Dosage: 5 MG, DAILY
     Dates: start: 1975
  3. PLAQUENIL [Concomitant]
     Active Substance: HYDROXYCHLOROQUINE SULFATE
     Dosage: UNK
     Dates: start: 1974

REACTIONS (5)
  - Pharyngeal ulceration [Recovering/Resolving]
  - Gastric ulcer [Recovering/Resolving]
  - Eating disorder [Recovered/Resolved]
  - Immune system disorder [Not Recovered/Not Resolved]
  - Molluscum contagiosum [Unknown]
